FAERS Safety Report 7326195-8 (Version None)
Quarter: 2011Q1

REPORT INFORMATION
  Report Type: 
  Country: None (occurrence: None)
  Receive Date: 20110302
  Receipt Date: 20110217
  Transmission Date: 20110831
  Serious: Yes (Other)
  Sender: FDA-Public Use
  Company Number: FR-ELI_LILLY_AND_COMPANY-FR201102005506

PATIENT

DRUGS (3)
  1. CYMBALTA [Suspect]
     Indication: DEPRESSION
     Route: 064
     Dates: end: 20101210
  2. LYSANXIA [Concomitant]
     Dosage: 10 MG, UNK
     Route: 064
     Dates: end: 20101210
  3. AVLOCARDYL [Concomitant]
     Dosage: 40 MG, DAILY (1/D)
     Route: 064
     Dates: end: 20101210

REACTIONS (7)
  - SLEEP DISORDER [None]
  - IRRITABILITY [None]
  - DRUG EXPOSURE DURING PREGNANCY [None]
  - HYPERTONIA NEONATAL [None]
  - BRONCHIOLITIS [None]
  - DRUG WITHDRAWAL SYNDROME [None]
  - INFANTILE COLIC [None]
